FAERS Safety Report 17171475 (Version 4)
Quarter: 2022Q4

REPORT INFORMATION
  Report Type: Other
  Country: AU (occurrence: AU)
  Receive Date: 20191218
  Receipt Date: 20221117
  Transmission Date: 20230113
  Serious: No
  Sender: FDA-Public Use
  Company Number: AU-TOLMAR, INC.-19AU001076

PATIENT
  Age: 80 Year
  Sex: Male

DRUGS (1)
  1. ELIGARD [Suspect]
     Active Substance: LEUPROLIDE ACETATE
     Indication: Prostate cancer
     Dosage: 22.5 MG, Q 3 MONTH
     Dates: start: 20180814

REACTIONS (3)
  - Hyperkeratosis [Recovered/Resolved]
  - Skin ulcer [Unknown]
  - Skin papilloma [Unknown]

NARRATIVE: CASE EVENT DATE: 20190901
